FAERS Safety Report 6765173-4 (Version None)
Quarter: 2010Q2

REPORT INFORMATION
  Report Type: 
  Country: None (occurrence: None)
  Receive Date: 20100610
  Receipt Date: 20100610
  Transmission Date: 20101027
  Serious: Yes (Hospitalization)
  Sender: FDA-Public Use
  Company Number: None

PATIENT
  Age: 75 Year
  Sex: Male

DRUGS (4)
  1. METHOTREXATE [Suspect]
     Dosage: EVERY 2 WEEKS FOR 3 CYCLES
     Dates: start: 20100302, end: 20100406
  2. VINBLASTINE SULFATE [Suspect]
     Dosage: EVERY 2 WEEKS FOR 3 CYCLES
  3. DOXORUBICIN HCL [Suspect]
     Dosage: EVERY 2 WEEKS FOR 3 CYCLES
  4. CISPLATIN [Suspect]
     Dosage: EVERY 2 WEEKS FOR 3 CYCLES

REACTIONS (4)
  - DYSPNOEA [None]
  - MENTAL STATUS CHANGES [None]
  - TACHYCARDIA [None]
  - WOUND INFECTION [None]
